FAERS Safety Report 23111128 (Version 3)
Quarter: 2023Q4

REPORT INFORMATION
  Report Type: Spontaneous
  Country: CA (occurrence: CA)
  Receive Date: 20231026
  Receipt Date: 20231219
  Transmission Date: 20240109
  Serious: Yes (Other)
  Sender: FDA-Public Use
  Company Number: CA-PFIZER INC-202300197312

PATIENT
  Age: 34 Year
  Sex: Female

DRUGS (4)
  1. RUXIENCE [Suspect]
     Active Substance: RITUXIMAB-PVVR
     Indication: Multiple sclerosis
     Dosage: 1000 MG Q 2 WEEKS X 2 DOSES THEN 1000MG IV Q 6 MONTHS.
     Route: 042
     Dates: start: 20230622, end: 20230706
  2. RUXIENCE [Suspect]
     Active Substance: RITUXIMAB-PVVR
     Dosage: 1000 MG Q 2 WEEKS X 2 DOSES THEN 1000MG IV Q 6 MONTHS.
     Route: 042
     Dates: start: 20230706
  3. ESCITALOPRAM [Concomitant]
     Active Substance: ESCITALOPRAM OXALATE
     Dosage: UNK
  4. GABAPENTIN [Concomitant]
     Active Substance: GABAPENTIN
     Dosage: UNK
     Dates: start: 20230523

REACTIONS (3)
  - Ear disorder [Unknown]
  - Pharyngitis streptococcal [Recovered/Resolved]
  - Off label use [Unknown]

NARRATIVE: CASE EVENT DATE: 20230101
